FAERS Safety Report 4760041-1 (Version None)
Quarter: 2005Q3

REPORT INFORMATION
  Report Type: 
  Country: None (occurrence: None)
  Receive Date: 20050831
  Receipt Date: 20050811
  Transmission Date: 20060218
  Serious: Yes (Other)
  Sender: FDA-Public Use
  Company Number: USA0508105248

PATIENT
  Age: 25 Year
  Sex: Female

DRUGS (13)
  1. ZYPREXA [Suspect]
     Indication: BORDERLINE PERSONALITY DISORDER
     Dosage: 10 MG DAY
     Dates: start: 20000101, end: 20050401
  2. LEXPRO (ESCITALOPRAM OXALATE) [Concomitant]
  3. ACTIQ [Concomitant]
  4. ZANAFLEX [Concomitant]
  5. MINOCYCLINE [Concomitant]
  6. KLONOPIN [Concomitant]
  7. PHEMERGAN (PROMETHAZINE HYDROCHLORIDE) [Concomitant]
  8. TYLENOL [Concomitant]
  9. DARVOCET [Concomitant]
  10. ANAPROX [Concomitant]
  11. MOTRIN [Concomitant]
  12. PRILOSEC [Concomitant]
  13. WELLBUTRIN [Concomitant]

REACTIONS (3)
  - BENIGN INTRACRANIAL HYPERTENSION [None]
  - DRUG INTOLERANCE [None]
  - WEIGHT INCREASED [None]
